FAERS Safety Report 7882232-3 (Version None)
Quarter: 2011Q4

REPORT INFORMATION
  Report Type: 
  Country: None (occurrence: None)
  Receive Date: 20111101
  Receipt Date: 20110610
  Transmission Date: 20120403
  Serious: No
  Sender: FDA-Public Use
  Company Number: US-AMGEN-USASP2011030000

PATIENT
  Age: 64 Year
  Sex: Female

DRUGS (2)
  1. ARAVA [Concomitant]
     Dates: start: 20100101
  2. ENBREL [Suspect]
     Indication: RHEUMATOID ARTHRITIS
     Dosage: 50 MG, QWK
     Dates: start: 20110525

REACTIONS (4)
  - BACK PAIN [None]
  - FATIGUE [None]
  - NECK PAIN [None]
  - MUSCULOSKELETAL PAIN [None]
